FAERS Safety Report 5162491-0 (Version None)
Quarter: 2006Q4

REPORT INFORMATION
  Report Type: 
  Country: None (occurrence: None)
  Receive Date: 20061129
  Receipt Date: 20061129
  Transmission Date: 20070319
  Serious: Yes (Hospitalization)
  Sender: FDA-Public Use
  Company Number: None

PATIENT
  Age: 70 Year
  Sex: Male
  Weight: 57.1532 kg

DRUGS (5)
  1. MOXIFLOXACIN HCL [Suspect]
     Dosage: 400 MG DAILY IV
     Route: 042
     Dates: start: 20061118, end: 20061121
  2. MOXIFLOXACIN HCL [Suspect]
     Dosage: 400 MG DAILY PO
     Route: 048
     Dates: start: 20061121, end: 20061128
  3. FELODIPINE [Concomitant]
  4. GALANTAMINE HYDROBROMIDE [Concomitant]
  5. HYDROCHLOROTHIAZIDE [Concomitant]

REACTIONS (1)
  - CLOSTRIDIUM DIFFICILE COLITIS [None]
